FAERS Safety Report 9414497 (Version 3)
Quarter: 2013Q3

REPORT INFORMATION
  Report Type: Spontaneous
  Country: JP (occurrence: JP)
  Receive Date: 20130723
  Receipt Date: 20130909
  Transmission Date: 20140515
  Serious: Yes (Hospitalization)
  Sender: FDA-Public Use
  Company Number: JP-GLAXOSMITHKLINE-B0909696A

PATIENT
  Age: 36 Year
  Sex: Female

DRUGS (6)
  1. LAMICTAL [Suspect]
     Indication: EPILEPSY
     Dosage: 75MG TWICE PER DAY
     Route: 048
     Dates: start: 20100324, end: 20130726
  2. DEPAKENE-R [Suspect]
     Indication: EPILEPSY
     Dosage: 600MG TWICE PER DAY
     Route: 048
     Dates: start: 200803, end: 20130726
  3. TOPINA [Concomitant]
     Indication: EPILEPSY
     Dosage: 100MG PER DAY
     Route: 048
  4. DIAZEPAM [Concomitant]
     Indication: EPILEPSY
     Dosage: 2MG TWICE PER DAY
     Route: 048
  5. LIVALO [Concomitant]
     Indication: DYSLIPIDAEMIA
     Dosage: 1MG PER DAY
     Route: 048
  6. METGLUCO [Concomitant]
     Indication: TYPE 2 DIABETES MELLITUS
     Dosage: 750MG THREE TIMES PER DAY
     Route: 048

REACTIONS (2)
  - Hypogammaglobulinaemia [Recovering/Resolving]
  - Pneumonia [Unknown]
